FAERS Safety Report 8040881-6 (Version None)
Quarter: 2012Q1

REPORT INFORMATION
  Report Type: 
  Country: None (occurrence: None)
  Receive Date: 20120112
  Receipt Date: 20120105
  Transmission Date: 20120608
  Serious: No
  Sender: FDA-Public Use
  Company Number: US-BIOGENIDEC-2009BI012034

PATIENT
  Sex: Female

DRUGS (2)
  1. TYSABRI [Suspect]
     Indication: MULTIPLE SCLEROSIS
     Route: 042
     Dates: start: 20081217
  2. BOTOX [Concomitant]
     Indication: PROPHYLAXIS

REACTIONS (5)
  - HEADACHE [None]
  - PAIN IN JAW [None]
  - LIP PAIN [None]
  - MEMORY IMPAIRMENT [None]
  - FALL [None]
